FAERS Safety Report 8616041-4 (Version None)
Quarter: 2012Q3

REPORT INFORMATION
  Report Type: 
  Country: None (occurrence: None)
  Receive Date: 20120823
  Receipt Date: 20120813
  Transmission Date: 20120928
  Serious: Yes (Other)
  Sender: FDA-Public Use
  Company Number: US-CELGENEUS-163-50794-12080449

PATIENT
  Sex: Female

DRUGS (25)
  1. VIDAZA [Suspect]
     Dosage: 75 MILLIGRAM/SQ. METER
     Route: 041
     Dates: start: 20111111, end: 20111117
  2. VALTREX [Concomitant]
     Indication: ANTIVIRAL PROPHYLAXIS
     Dosage: 500 MILLIGRAM
     Route: 048
  3. SPIRONOLACTONE [Concomitant]
     Dosage: 25 MILLIGRAM
     Route: 048
  4. CARVEDILOL [Concomitant]
     Indication: BLOOD PRESSURE
     Dosage: 6.25 MILLIGRAM
     Route: 048
  5. OXYCODONE HCL [Concomitant]
     Indication: PAIN
     Dosage: 1 OR 2 TABLETS
     Route: 048
  6. ZOFRAN [Concomitant]
     Indication: VOMITING
  7. CEFPODOXIME PROXETIL [Concomitant]
     Indication: ANTI-INFECTIVE THERAPY
     Dosage: 400 MILLIGRAM
     Route: 048
  8. ZOFRAN [Concomitant]
     Indication: NAUSEA
     Dosage: 24 MILLIGRAM
     Route: 048
  9. PROTONIX [Concomitant]
     Dosage: 40 MILLIGRAM
     Route: 048
  10. METOPROLOL TARTRATE [Concomitant]
     Dosage: 50 MILLIGRAM
     Route: 065
  11. XOPENEX [Concomitant]
  12. BACTRIM DS [Concomitant]
     Indication: ANTI-INFECTIVE THERAPY
     Dosage: 800/160MG
     Route: 048
     Dates: start: 20120803
  13. SORAFENIB [Suspect]
     Dosage: 800 MILLIGRAM
     Route: 048
     Dates: start: 20111111, end: 20120206
  14. LEVAQUIN [Concomitant]
     Route: 065
  15. CIPROFLOXACIN [Concomitant]
     Indication: ANTI-INFECTIVE THERAPY
     Dosage: 1000 MILLIGRAM
     Route: 041
     Dates: start: 20120803
  16. VIDAZA [Suspect]
     Dosage: 75 MILLIGRAM/SQ. METER
     Route: 041
     Dates: start: 20120120, end: 20120126
  17. FLUCONAZOLE [Concomitant]
     Route: 065
  18. VIDAZA [Suspect]
     Dosage: 75 MILLIGRAM/SQ. METER
     Route: 041
     Dates: start: 20111208, end: 20111214
  19. KLOR-CON [Concomitant]
     Route: 065
  20. XOPENEX [Concomitant]
     Indication: WHEEZING
     Dosage: 2 PUFFS
     Route: 048
  21. LISINOPRIL [Concomitant]
     Indication: BLOOD PRESSURE
     Dosage: 5 MILLIGRAM
     Route: 048
  22. LASIX [Concomitant]
     Indication: FLUID RETENTION
     Dosage: 40 MILLIGRAM
     Route: 048
  23. AMIODARONE HCL [Concomitant]
     Dosage: 400 MILLIGRAM
     Route: 048
  24. AQUAPHOR [Concomitant]
     Indication: RASH
     Dosage: 1 APPLICATION
     Route: 061
  25. CANCIDAS [Concomitant]
     Indication: ANTIFUNGAL PROPHYLAXIS
     Dosage: 50 M
     Route: 041

REACTIONS (1)
  - CARDIOMYOPATHY [None]
